FAERS Safety Report 9580720 (Version 1)
Quarter: 2013Q3

REPORT INFORMATION
  Report Type: Spontaneous
  Country: US (occurrence: None)
  Receive Date: 20130916
  Receipt Date: 20130916
  Transmission Date: 20140515
  Serious: Yes (Other)
  Sender: FDA-Public Use
  Company Number: JPI-P-027423

PATIENT
  Age: 45 Year
  Sex: Female
  Weight: 97.07 kg

DRUGS (17)
  1. XYREM [Suspect]
     Indication: CATAPLEXY
     Route: 048
     Dates: start: 20121203, end: 201212
  2. LORAZEPAM [Suspect]
     Indication: ANXIETY
     Route: 048
  3. ALBUTEROL NEB SOLUTION [Concomitant]
  4. ARMODAFINIL [Concomitant]
  5. FLUTICASONE AND PROPIONATE AND SALMETEROL XINAFOATE [Concomitant]
  6. OMEPRAZOLE [Concomitant]
  7. METOPROLOL [Concomitant]
  8. BUSPIRONE [Concomitant]
  9. ROPINIROLE [Concomitant]
  10. IRON GLUCONATE [Concomitant]
  11. LOSARTAN POTASSIUM [Concomitant]
  12. FLUOXETINE HYDROCHLORIDE [Concomitant]
  13. ONDANSETRON [Concomitant]
  14. ONDANSETRON [Concomitant]
  15. GABAPENTIN [Concomitant]
  16. MODAFINIL [Concomitant]
  17. FAMOTIDINE [Concomitant]

REACTIONS (28)
  - Blood pressure increased [None]
  - Condition aggravated [None]
  - Sinusitis [None]
  - Body temperature decreased [None]
  - Asthma [None]
  - Painful respiration [None]
  - Feeling hot [None]
  - Malaise [None]
  - Nasopharyngitis [None]
  - Oropharyngeal pain [None]
  - Chills [None]
  - Ear pain [None]
  - Pain [None]
  - Heart rate increased [None]
  - Feeling cold [None]
  - Tremor [None]
  - Dyspnoea [None]
  - Cold sweat [None]
  - Menorrhagia [None]
  - Chest pain [None]
  - Muscle strain [None]
  - Headache [None]
  - Decreased appetite [None]
  - Diarrhoea [None]
  - Dyspnoea [None]
  - Nausea [None]
  - Alopecia [None]
  - Fall [None]
